FAERS Safety Report 10958255 (Version 2)
Quarter: 2015Q2

REPORT INFORMATION
  Report Type: Report from Study
  Country: US (occurrence: US)
  Receive Date: 20150326
  Receipt Date: 20150519
  Transmission Date: 20150821
  Serious: Yes (Other)
  Sender: FDA-Public Use
  Company Number: US-ABBVIE-15P-163-1365137-00

PATIENT
  Age: 60 Year
  Sex: Male

DRUGS (1)
  1. HUMIRA [Suspect]
     Active Substance: ADALIMUMAB
     Indication: RHEUMATOID ARTHRITIS
     Dosage: INITIAL DOSE
     Route: 058
     Dates: start: 20150211

REACTIONS (4)
  - Peripheral arterial occlusive disease [Recovered/Resolved]
  - Localised infection [Recovering/Resolving]
  - Drug ineffective [Not Recovered/Not Resolved]
  - Nodule [Recovering/Resolving]

NARRATIVE: CASE EVENT DATE: 20150211
